FAERS Safety Report 6766068-2 (Version None)
Quarter: 2010Q2

REPORT INFORMATION
  Report Type: 
  Country: None (occurrence: None)
  Receive Date: 20100611
  Receipt Date: 20100601
  Transmission Date: 20101027
  Serious: Yes (Congenital Anomaly)
  Sender: FDA-Public Use
  Company Number: B0659925A

PATIENT

DRUGS (3)
  1. DICLOFENAC [Suspect]
     Indication: PAIN
  2. PREDNISOLONE [Suspect]
  3. HYDROCORTISONE [Suspect]

REACTIONS (2)
  - DRUG EXPOSURE DURING PREGNANCY [None]
  - PULMONARY VALVE STENOSIS [None]
